FAERS Safety Report 8543022-1 (Version None)
Quarter: 2012Q3

REPORT INFORMATION
  Report Type: 
  Country: None (occurrence: None)
  Receive Date: 20120727
  Receipt Date: 20120717
  Transmission Date: 20120928
  Serious: Yes (Hospitalization, Other)
  Sender: FDA-Public Use
  Company Number: NL-JNJFOC-20120312240

PATIENT
  Age: 42 Year
  Sex: Female

DRUGS (4)
  1. REMICADE [Suspect]
     Dosage: 350 MG
     Route: 042
     Dates: start: 20040101, end: 20060101
  2. REMICADE [Suspect]
     Indication: CROHN'S DISEASE
     Route: 042
  3. HUMIRA [Suspect]
     Indication: CROHN'S DISEASE
     Route: 065
     Dates: start: 20080101, end: 20090101
  4. CONTRACEPTION [Suspect]
     Indication: CONTRACEPTION
     Route: 048

REACTIONS (2)
  - DEMENTIA [None]
  - ISCHAEMIC CEREBRAL INFARCTION [None]
